FAERS Safety Report 7764851-8 (Version None)
Quarter: 2011Q3

REPORT INFORMATION
  Report Type: 
  Country: None (occurrence: None)
  Receive Date: 20110921
  Receipt Date: 20110915
  Transmission Date: 20111222
  Serious: Yes (Hospitalization, Other)
  Sender: FDA-Public Use
  Company Number: US-PFIZER INC-2011147892

PATIENT
  Sex: Male

DRUGS (3)
  1. CHANTIX [Suspect]
     Dosage: 1 MG, UNK
     Dates: start: 20090205, end: 20090611
  2. CHANTIX [Suspect]
     Dosage: 1 MG, UNK
     Dates: start: 20071126, end: 20081126
  3. CHANTIX [Suspect]
     Indication: SMOKING CESSATION THERAPY
     Dosage: 1 MG, UNK
     Dates: start: 20070821, end: 20070920

REACTIONS (9)
  - INTENTIONAL OVERDOSE [None]
  - SUICIDE ATTEMPT [None]
  - ABNORMAL BEHAVIOUR [None]
  - DEPRESSION [None]
  - ANXIETY [None]
  - MENTAL DISORDER [None]
  - SUICIDAL IDEATION [None]
  - AGGRESSION [None]
  - EMOTIONAL DISTRESS [None]
